FAERS Safety Report 5700931-6 (Version None)
Quarter: 2008Q2

REPORT INFORMATION
  Report Type: 
  Country: None (occurrence: None)
  Receive Date: 20080410
  Receipt Date: 20080407
  Transmission Date: 20081010
  Serious: Yes (Hospitalization)
  Sender: FDA-Public Use
  Company Number: B0514435B

PATIENT
  Age: 45 Year
  Sex: Female
  Weight: 68 kg

DRUGS (2)
  1. TOPOTECAN [Suspect]
     Route: 042
     Dates: start: 20080226
  2. CARBOPLATIN [Suspect]
     Dosage: 778MG PER DAY
     Route: 042
     Dates: start: 20080228

REACTIONS (4)
  - ABDOMINAL PAIN UPPER [None]
  - CHOKING [None]
  - DRUG HYPERSENSITIVITY [None]
  - NAUSEA [None]
